FAERS Safety Report 10084031 (Version 1)
Quarter: 2014Q2

REPORT INFORMATION
  Report Type: Spontaneous
  Country: GB (occurrence: GB)
  Receive Date: 20140417
  Receipt Date: 20140417
  Transmission Date: 20141212
  Serious: Yes (Hospitalization)
  Sender: FDA-Public Use
  Company Number: GB-TEVA-475199ISR

PATIENT
  Sex: Male

DRUGS (1)
  1. TRAMADOL [Suspect]
     Indication: ANALGESIC THERAPY
     Route: 048
     Dates: start: 20140325, end: 20140328

REACTIONS (4)
  - Hallucination [Recovered/Resolved]
  - Urinary tract infection [Recovered/Resolved]
  - Mental disorder [Recovered/Resolved]
  - Mood swings [Recovered/Resolved]
